FAERS Safety Report 7747127-4 (Version None)
Quarter: 2011Q3

REPORT INFORMATION
  Report Type: 
  Country: None (occurrence: None)
  Receive Date: 20110913
  Receipt Date: 20110906
  Transmission Date: 20111222
  Serious: Yes (Death)
  Sender: FDA-Public Use
  Company Number: HU-ABBOTT-11P-076-0848894-00

PATIENT
  Age: 32 Year
  Sex: Female
  Weight: 58 kg

DRUGS (4)
  1. MESALAMINE [Concomitant]
     Indication: CROHN'S DISEASE
     Dosage: 3 GR DAILY
     Dates: start: 20080701, end: 20101201
  2. AZATHIOPRINE [Suspect]
     Indication: CROHN'S DISEASE
     Dosage: 100 MG DAILY
     Route: 048
     Dates: start: 19990501, end: 20101201
  3. AZATHIOPRINE [Suspect]
     Dates: start: 20080601
  4. ADALIMUMAB [Suspect]
     Indication: CROHN'S DISEASE
     Route: 058
     Dates: start: 20080601, end: 20090630

REACTIONS (1)
  - NATURAL KILLER-CELL LYMPHOBLASTIC LYMPHOMA [None]
